FAERS Safety Report 7675381-6 (Version None)
Quarter: 2011Q3

REPORT INFORMATION
  Report Type: 
  Country: None (occurrence: None)
  Receive Date: 20110810
  Receipt Date: 20110809
  Transmission Date: 20111222
  Serious: Yes (Other)
  Sender: FDA-Public Use
  Company Number: US-PFIZER INC-2011182836

PATIENT
  Sex: Male
  Weight: 81.633 kg

DRUGS (7)
  1. CHANTIX [Suspect]
     Dosage: UNK
     Route: 048
     Dates: start: 20110701, end: 20110701
  2. ACETYLSALICYLIC ACID [Concomitant]
     Dosage: 350 MG, UNK
  3. METOPROLOL [Concomitant]
     Dosage: UNK
  4. CHANTIX [Suspect]
     Indication: SMOKING CESSATION THERAPY
     Dosage: 0.5 MG, 1X/DAY
     Route: 048
     Dates: start: 20090801
  5. GABAPENTIN [Concomitant]
     Dosage: 300 MG, 4X/DAY
  6. CHANTIX [Suspect]
     Dosage: 0.5 MG, 1X/DAY
     Route: 048
     Dates: start: 20110726
  7. PLAVIX [Concomitant]
     Dosage: UNK

REACTIONS (5)
  - TREMOR [None]
  - HAEMORRHAGE [None]
  - BLOOD CHOLESTEROL ABNORMAL [None]
  - BIPOLAR I DISORDER [None]
  - ANAEMIA [None]
